FAERS Safety Report 10953676 (Version 1)
Quarter: 2015Q1

REPORT INFORMATION
  Report Type: Spontaneous
  Country: US (occurrence: US)
  Receive Date: 20150325
  Receipt Date: 20150325
  Transmission Date: 20150721
  Serious: Yes (Death)
  Sender: FDA-Public Use
  Company Number: US-CIPLA LTD.-2015US02392

PATIENT

DRUGS (4)
  1. ESCITAOPRAM [Suspect]
     Active Substance: ESCITALOPRAM OXALATE
  2. ETHANOL [Suspect]
     Active Substance: ALCOHOL
  3. METHAMPHETAMINE [Suspect]
     Active Substance: METHAMPHETAMINE
  4. ZOLPIDEM TARTARATE [Suspect]
     Active Substance: ZOLPIDEM TARTRATE

REACTIONS (1)
  - Completed suicide [Fatal]
